FAERS Safety Report 9561325 (Version 1)
Quarter: 2013Q3

REPORT INFORMATION
  Report Type: Spontaneous
  Country: GB (occurrence: GB)
  Receive Date: 20130927
  Receipt Date: 20130927
  Transmission Date: 20140515
  Serious: Yes (Disabling)
  Sender: FDA-Public Use
  Company Number: GB-GALDERMA-GB13002937

PATIENT
  Age: 54 Year
  Sex: Female
  Weight: 65 kg

DRUGS (10)
  1. DOXYCYCLINE [Suspect]
     Indication: PRODUCT USED FOR UNKNOWN INDICATION
     Dates: start: 20130904
  2. DOXYCYCLINE [Suspect]
     Dates: start: 20130909
  3. AMITRIPTYLINE HYDROCHLORIDE [Concomitant]
     Indication: PRODUCT USED FOR UNKNOWN INDICATION
     Dates: start: 20130808, end: 20130905
  4. AMITRIPTYLINE HYDROCHLORIDE [Concomitant]
     Dates: start: 20130709, end: 20130806
  5. AMOXICILLIN [Concomitant]
     Indication: PRODUCT USED FOR UNKNOWN INDICATION
     Dates: start: 20130823, end: 20130830
  6. CO-CODAMOL [Concomitant]
     Indication: PRODUCT USED FOR UNKNOWN INDICATION
     Dates: start: 20130529, end: 20130626
  7. DIAZEPAM [Concomitant]
     Indication: PRODUCT USED FOR UNKNOWN INDICATION
     Dates: start: 20130820, end: 20130827
  8. DIAZEPAM [Concomitant]
     Dates: start: 20130529, end: 20130612
  9. PERMETHRIN [Concomitant]
     Indication: PRODUCT USED FOR UNKNOWN INDICATION
     Dates: start: 20130820, end: 20130821
  10. PREGABALIN [Concomitant]
     Indication: PRODUCT USED FOR UNKNOWN INDICATION
     Dates: start: 20130808, end: 20130905

REACTIONS (3)
  - Photosensitivity reaction [Recovering/Resolving]
  - Benign intracranial hypertension [Recovering/Resolving]
  - Headache [Recovering/Resolving]
